FAERS Safety Report 13611077 (Version 1)
Quarter: 2017Q2

REPORT INFORMATION
  Report Type: Spontaneous
  Country: US (occurrence: US)
  Receive Date: 20170603
  Receipt Date: 20170603
  Transmission Date: 20170830
  Serious: Yes (Death)
  Sender: FDA-Public Use
  Company Number: None

PATIENT
  Age: 20 Year
  Sex: Male
  Weight: 72 kg

DRUGS (3)
  1. ESCITALOPRAM [Suspect]
     Active Substance: ESCITALOPRAM OXALATE
     Indication: DEPRESSION
     Dosage: ?          QUANTITY:1 TABLET(S);?
     Route: 048
     Dates: start: 20160813, end: 20161013
  2. ABILIFY [Concomitant]
     Active Substance: ARIPIPRAZOLE
  3. ESCITALOPRAM [Suspect]
     Active Substance: ESCITALOPRAM OXALATE
     Indication: ANXIETY
     Dosage: ?          QUANTITY:1 TABLET(S);?
     Route: 048
     Dates: start: 20160813, end: 20161013

REACTIONS (4)
  - Nightmare [None]
  - Completed suicide [None]
  - Asphyxia [None]
  - Alcohol poisoning [None]

NARRATIVE: CASE EVENT DATE: 20161014
